FAERS Safety Report 5721756-1 (Version None)
Quarter: 2008Q2

REPORT INFORMATION
  Report Type: 
  Country: None (occurrence: None)
  Receive Date: 20080429
  Receipt Date: 20070430
  Transmission Date: 20081010
  Serious: No
  Sender: FDA-Public Use
  Company Number: US-ASTRAZENECA-2007UW08600

PATIENT
  Age: 70 Year
  Sex: Female
  Weight: 81.6 kg

DRUGS (5)
  1. NEXIUM [Suspect]
     Indication: GASTROOESOPHAGEAL REFLUX DISEASE
     Route: 048
  2. COUMADIN [Suspect]
  3. AVAPRO [Concomitant]
  4. TENORMIN [Concomitant]
  5. ALDACTONE [Concomitant]

REACTIONS (1)
  - RECTAL HAEMORRHAGE [None]
